FAERS Safety Report 13376663 (Version 1)
Quarter: 2017Q1

REPORT INFORMATION
  Report Type: Spontaneous
  Country: US (occurrence: US)
  Receive Date: 20170328
  Receipt Date: 20170328
  Transmission Date: 20170429
  Serious: No
  Sender: FDA-Public Use
  Company Number: US-TEVA-749437ACC

PATIENT
  Sex: Female

DRUGS (1)
  1. COPAXONE [Suspect]
     Active Substance: GLATIRAMER ACETATE
     Indication: MULTIPLE SCLEROSIS RELAPSE
     Route: 058
     Dates: start: 20170222

REACTIONS (5)
  - Injection site pain [Recovered/Resolved]
  - Emotional disorder [Unknown]
  - Memory impairment [Unknown]
  - Injection site pruritus [Recovered/Resolved]
  - Aphasia [Unknown]
